FAERS Safety Report 6960782 (Version 2)
Quarter: 2014Q3

REPORT INFORMATION
  Report Type: Spontaneous
  Country: US (occurrence: None)
  Receive Date: 20090326
  Receipt Date: 20140904
  Transmission Date: 20150326
  Serious: Yes (Hospitalization, Other)
  Sender: FDA-Public Use
  Company Number: 2009S1002560

PATIENT
  Age: 60 Year
  Sex: Female

DRUGS (8)
  1. EVISTA [Concomitant]
     Active Substance: RALOXIFENE HYDROCHLORIDE
  2. CENTRUM [Concomitant]
     Active Substance: VITAMINS
  3. METOPROLOL [Concomitant]
     Active Substance: METOPROLOL
  4. TARKA [Concomitant]
     Active Substance: TRANDOLAPRIL\VERAPAMIL HYDROCHLORIDE
  5. CALCIUM WITH VITAMIN D [Concomitant]
     Active Substance: CALCIUM\VITAMIN D
  6. PHOSPHO-SODA [Suspect]
     Active Substance: SODIUM PHOSPHATE, DIBASIC\SODIUM PHOSPHATE, MONOBASIC
     Indication: COLONOSCOPY
     Dosage: PO
     Route: 048
     Dates: start: 20040708, end: 20040709
  7. ASPIRIN. [Concomitant]
     Active Substance: ASPIRIN
  8. ACETAMINOPHEN (PARACETAMOL) [Concomitant]
     Active Substance: ACETAMINOPHEN

REACTIONS (24)
  - Oedema peripheral [None]
  - Headache [None]
  - Ileus [None]
  - Renal failure acute [None]
  - Hypercalcaemia [None]
  - Abdominal distension [None]
  - Retching [None]
  - Dehydration [None]
  - Haemorrhoids [None]
  - Gastrointestinal haemorrhage [None]
  - Nephrogenic anaemia [None]
  - Blood parathyroid hormone increased [None]
  - Hypertension [None]
  - Hypophagia [None]
  - Diarrhoea [None]
  - Asthenia [None]
  - Post procedural complication [None]
  - Gait disturbance [None]
  - Renal failure chronic [None]
  - Anaemia [None]
  - Nephropathy [None]
  - Blood pressure increased [None]
  - Renal tubular necrosis [None]
  - Nausea [None]

NARRATIVE: CASE EVENT DATE: 20040711
